FAERS Safety Report 8971062 (Version 1)
Quarter: 2012Q4

REPORT INFORMATION
  Report Type: 
  Country: US (occurrence: US)
  Receive Date: 20121218
  Receipt Date: 20121218
  Transmission Date: 20130627
  Serious: No
  Sender: FDA-Public Use
  Company Number: US-BRISTOL-MYERS SQUIBB COMPANY-16481863

PATIENT
  Age: 30 Year
  Sex: Male
  Weight: 70 kg

DRUGS (2)
  1. ABILIFY [Suspect]
     Indication: DEPRESSION
     Dosage: Also taken Abilify 7.5 mg for a week
  2. ABILIFY [Suspect]
     Indication: ANXIETY
     Dosage: Also taken Abilify 7.5 mg for a week

REACTIONS (5)
  - Poor quality sleep [Unknown]
  - Fatigue [Unknown]
  - Dizziness [Unknown]
  - Increased appetite [Unknown]
  - Weight increased [Unknown]
